FAERS Safety Report 7259112-X (Version None)
Quarter: 2011Q1

REPORT INFORMATION
  Report Type: 
  Country: None (occurrence: None)
  Receive Date: 20110129
  Receipt Date: 20100812
  Transmission Date: 20110831
  Serious: No
  Sender: FDA-Public Use
  Company Number: US-ABBOTT-10P-163-0663831-00

PATIENT
  Sex: Female
  Weight: 65.83 kg

DRUGS (4)
  1. MULTI-VITAMIN [Concomitant]
     Indication: VITAMIN SUPPLEMENTATION
  2. SEASONALE [Concomitant]
     Indication: CONTRACEPTION
  3. HUMIRA [Suspect]
     Dates: start: 20100811
  4. HUMIRA [Suspect]
     Indication: COLITIS ULCERATIVE
     Dates: start: 20080101, end: 20100811

REACTIONS (3)
  - HAEMATOCHEZIA [None]
  - ABDOMINAL PAIN UPPER [None]
  - DIARRHOEA [None]
